FAERS Safety Report 13332545 (Version 1)
Quarter: 2017Q1

REPORT INFORMATION
  Report Type: Spontaneous
  Country: CA (occurrence: US)
  Receive Date: 20170314
  Receipt Date: 20170314
  Transmission Date: 20170428
  Serious: Yes (Death, Hospitalization)
  Sender: FDA-Public Use
  Company Number: None

PATIENT
  Age: 63 Year
  Sex: Male
  Weight: 92.7 kg

DRUGS (1)
  1. MEMANTINE HYDROCHLORIDE. [Suspect]
     Active Substance: MEMANTINE HYDROCHLORIDE
     Dates: end: 20170128

REACTIONS (6)
  - Pulmonary mass [None]
  - Deep vein thrombosis [None]
  - Pneumonia [None]
  - Lung consolidation [None]
  - Pulmonary embolism [None]
  - Thrombocytopenia [None]

NARRATIVE: CASE EVENT DATE: 20170205
